FAERS Safety Report 5128904-5 (Version None)
Quarter: 2006Q4

REPORT INFORMATION
  Report Type: 
  Country: None (occurrence: None)
  Receive Date: 20061011
  Receipt Date: 20061001
  Transmission Date: 20070319
  Serious: Yes (Other)
  Sender: FDA-Public Use
  Company Number: HQWYE795709OCT06

PATIENT
  Sex: Female

DRUGS (1)
  1. DIMETAPP [Suspect]
     Indication: HYPERSENSITIVITY
     Dosage: THREE TO FOUR TABLETS A WEEK
     Dates: start: 19860101

REACTIONS (2)
  - DRUG DEPENDENCE [None]
  - DRUG WITHDRAWAL SYNDROME [None]
